FAERS Safety Report 7207182-7 (Version None)
Quarter: 2011Q1

REPORT INFORMATION
  Report Type: 
  Country: None (occurrence: None)
  Receive Date: 20110103
  Receipt Date: 20101224
  Transmission Date: 20110831
  Serious: Yes (Life-Threatening, Hospitalization, Other)
  Sender: FDA-Public Use
  Company Number: AU-ROCHE-745153

PATIENT
  Sex: Male
  Weight: 39 kg

DRUGS (7)
  1. AVASTIN [Suspect]
     Indication: COLORECTAL CANCER
     Dosage: SINGLE DOSE
     Route: 042
     Dates: start: 20101115, end: 20101115
  2. XELODA [Suspect]
     Route: 065
     Dates: start: 20101115
  3. ACCURETIC [Concomitant]
     Indication: HYPERTENSION
     Route: 048
  4. OXALIPLATIN [Concomitant]
     Dates: start: 20101115
  5. ASPIRIN [Concomitant]
  6. METOPROLOL [Concomitant]
     Indication: HYPERTENSION
     Route: 048
  7. GTN SPRAY [Concomitant]
     Dosage: AS NEEDED
     Route: 060

REACTIONS (3)
  - INFARCTION [None]
  - AORTIC DISSECTION [None]
  - MYOCARDIAL ISCHAEMIA [None]
